FAERS Safety Report 14283999 (Version 1)
Quarter: 2017Q4

REPORT INFORMATION
  Report Type: Spontaneous
  Country: US (occurrence: US)
  Receive Date: 20171213
  Receipt Date: 20171213
  Transmission Date: 20180321
  Serious: Yes (Other)
  Sender: FDA-Public Use
  Company Number: None

PATIENT
  Age: 67 Year
  Sex: Male
  Weight: 99.31 kg

DRUGS (3)
  1. DEXAMETHASONE. [Concomitant]
     Active Substance: DEXAMETHASONE
  2. DARATUMUMAB [Concomitant]
     Active Substance: DARATUMUMAB
  3. POMALIDOMIDE [Suspect]
     Active Substance: POMALIDOMIDE
     Indication: PLASMA CELL MYELOMA
     Route: 048
     Dates: start: 20171031, end: 20171117

REACTIONS (6)
  - Decreased appetite [None]
  - Fatigue [None]
  - Chills [None]
  - Rash generalised [None]
  - Pyrexia [None]
  - Nausea [None]
